FAERS Safety Report 4927655-7 (Version None)
Quarter: 2006Q1

REPORT INFORMATION
  Report Type: 
  Country: None (occurrence: None)
  Receive Date: 20060228
  Receipt Date: 20051006
  Transmission Date: 20060701
  Serious: Yes (Hospitalization)
  Sender: FDA-Public Use
  Company Number: US-MERCK-0510USA05914

PATIENT
  Age: 78 Year
  Sex: Male
  Weight: 86 kg

DRUGS (12)
  1. VIOXX [Suspect]
     Indication: SCIATICA
     Route: 048
     Dates: start: 20010813, end: 20021213
  2. ACETAMINOPHEN AND CODEINE [Concomitant]
     Route: 065
  3. ASPIRIN [Concomitant]
     Route: 065
  4. AMITRIPTYLINE HYDROCHLORIDE [Concomitant]
     Route: 065
  5. HYDROXYZINE HYDROCHLORIDE [Concomitant]
     Route: 065
  6. CALCIUM (UNSPECIFIED) [Concomitant]
     Route: 065
  7. LISINOPRIL [Concomitant]
     Route: 065
  8. VITAMINS (UNSPECIFIED) [Concomitant]
     Route: 065
  9. OSTEO-BI-FLEX [Concomitant]
     Route: 065
  10. PLAVIX [Concomitant]
     Route: 065
  11. PENICILLIN (UNSPECIFIED) [Concomitant]
     Route: 065
  12. VEETIDS [Concomitant]
     Route: 065

REACTIONS (8)
  - ANGIOPATHY [None]
  - BRONCHITIS [None]
  - CATARACT [None]
  - CEREBROVASCULAR ACCIDENT [None]
  - CHOLELITHIASIS [None]
  - COUGH [None]
  - GASTRIC DISORDER [None]
  - URINARY TRACT INFECTION [None]
